FAERS Safety Report 8324355-0 (Version None)
Quarter: 2012Q1

REPORT INFORMATION
  Report Type: 
  Country: None (occurrence: None)
  Receive Date: 20120315
  Receipt Date: 20110615
  Transmission Date: 20120608
  Serious: No
  Sender: FDA-Public Use
  Company Number: PHHY2011US43311

PATIENT
  Age: 30 Year
  Sex: Female

DRUGS (2)
  1. THYROID TAB [Concomitant]
  2. GILENYA [Suspect]
     Indication: MULTIPLE SCLEROSIS
     Dosage: 0.5 MG, DAILY, ORAL
     Route: 048
     Dates: start: 20110513

REACTIONS (5)
  - DYSPNOEA [None]
  - FATIGUE [None]
  - HEADACHE [None]
  - HUNGER [None]
  - BURNING SENSATION [None]
